FAERS Safety Report 10155913 (Version 1)
Quarter: 2014Q2

REPORT INFORMATION
  Report Type: Spontaneous
  Country: FR (occurrence: FR)
  Receive Date: 20140506
  Receipt Date: 20140506
  Transmission Date: 20141212
  Serious: Yes (Hospitalization)
  Sender: FDA-Public Use
  Company Number: PHHY2014FR053072

PATIENT
  Age: 84 Year
  Sex: Female

DRUGS (13)
  1. STALEVO [Suspect]
     Indication: PARKINSON^S DISEASE
     Dosage: 3 DF (100/25/200 MG), DAILY
     Route: 048
  2. STALEVO [Suspect]
     Dosage: 3 DF (50/12.5/200 MG), DAILY
     Route: 048
     Dates: start: 20140313, end: 20140317
  3. TRAMADOL [Suspect]
     Dosage: 50 MG, BID
     Route: 048
     Dates: end: 20140313
  4. SEROPLEX [Suspect]
     Dosage: 20 MG, DAILY
     Route: 048
  5. SEROPLEX [Suspect]
     Dosage: 10 MG, DAILY
     Route: 048
     Dates: start: 20140313
  6. SEROPLEX [Suspect]
     Dosage: 05 MG, DAILY
     Route: 048
     Dates: start: 20140324
  7. CALCIDOSE VITAMINE D [Concomitant]
     Dosage: 1 DF (500 MG/400 IU), BID
  8. MOPRAL [Concomitant]
     Dosage: 20 MG, QD
  9. IMOVANE [Concomitant]
     Dosage: UNK UKN, UNK
  10. KARDEGIC [Concomitant]
     Dosage: 160 MG, DAILY
  11. LEVOTHYROX [Concomitant]
     Dosage: 50 UG, QD
  12. SERESTA [Concomitant]
     Dosage: 10 MG, BID
     Dates: end: 20140322
  13. PARACETAMOL [Concomitant]
     Dosage: 2 DF, Q8H, IF NEEDED

REACTIONS (3)
  - Abnormal behaviour [Recovered/Resolved]
  - Confusional state [Recovered/Resolved]
  - Agitation [Recovered/Resolved]
